FAERS Safety Report 7481747-X (Version None)
Quarter: 2011Q2

REPORT INFORMATION
  Report Type: 
  Country: None (occurrence: None)
  Receive Date: 20110516
  Receipt Date: 20110308
  Transmission Date: 20111010
  Serious: Yes (Other)
  Sender: FDA-Public Use
  Company Number: B0706219A

PATIENT
  Age: 37 Year
  Sex: Male

DRUGS (2)
  1. FLUTICASONE PROPIONATE [Suspect]
     Indication: ASTHMA
     Dosage: 1500MCG PER DAY
     Route: 065
  2. CORTISONE [Concomitant]

REACTIONS (1)
  - ADRENAL INSUFFICIENCY [None]
